FAERS Safety Report 15764466 (Version 1)
Quarter: 2018Q4

REPORT INFORMATION
  Report Type: Spontaneous
  Country: GB (occurrence: GB)
  Receive Date: 20181227
  Receipt Date: 20181227
  Transmission Date: 20190205
  Serious: Yes (Hospitalization)
  Sender: FDA-Public Use
  Company Number: GB-DRREDDYS-GER/UKI/18/0106372

PATIENT
  Age: 48 Year
  Sex: Male

DRUGS (3)
  1. FEXOFENADINE [Suspect]
     Active Substance: FEXOFENADINE\FEXOFENADINE HYDROCHLORIDE
     Indication: PRODUCT USED FOR UNKNOWN INDICATION
     Dosage: ONCE DAILY, AS REQUIRED.
     Route: 048
  2. CHLORPHENAMINE [Suspect]
     Active Substance: CHLORPHENIRAMINE MALEATE
     Indication: PRODUCT USED FOR UNKNOWN INDICATION
     Dosage: ONCE DAILY, AS REQUIRED
     Route: 048
  3. GINKGO BILOBA [Suspect]
     Active Substance: GINKGO
     Indication: PRODUCT USED FOR UNKNOWN INDICATION
     Dosage: PATIENT SAYS DOESN^T TAKE EVERY DAY BUT HAS BEEN TAKING MORE REGULARLY RECENTLY.
     Route: 048
     Dates: start: 20171101

REACTIONS (5)
  - Atrial fibrillation [Recovered/Resolved]
  - Electrocardiogram ST segment depression [Recovered/Resolved]
  - Dizziness [Recovered/Resolved]
  - Vomiting [Recovering/Resolving]
  - Palpitations [Recovered/Resolved]

NARRATIVE: CASE EVENT DATE: 20181119
